FAERS Safety Report 10277596 (Version 1)
Quarter: 2014Q3

REPORT INFORMATION
  Report Type: Spontaneous
  Country: IT (occurrence: IT)
  Receive Date: 20140704
  Receipt Date: 20140704
  Transmission Date: 20150326
  Serious: Yes (Hospitalization)
  Sender: FDA-Public Use
  Company Number: IT-INDICUS PHARMA-000264

PATIENT
  Age: 63 Year
  Sex: Male

DRUGS (3)
  1. METFORMIN [Suspect]
     Active Substance: METFORMIN HYDROCHLORIDE
     Indication: TYPE 2 DIABETES MELLITUS
  2. ANAGRELIDE [Concomitant]
     Active Substance: ANAGRELIDE
     Indication: TYPE 2 DIABETES MELLITUS
  3. REPAGLINIDE. [Concomitant]
     Active Substance: REPAGLINIDE
     Indication: TYPE 2 DIABETES MELLITUS

REACTIONS (13)
  - Tachycardia [None]
  - Dyspnoea [None]
  - Hyperlactacidaemia [Unknown]
  - Bundle branch block left [None]
  - Lactic acidosis [None]
  - Metabolic acidosis [None]
  - Tongue dry [None]
  - Diarrhoea [None]
  - Hypotension [None]
  - Abdominal pain [None]
  - Drug level above therapeutic [None]
  - Hypoglycaemia [Unknown]
  - Toxicity to various agents [Unknown]
